FAERS Safety Report 12307133 (Version 4)
Quarter: 2018Q3

REPORT INFORMATION
  Report Type: Spontaneous
  Country: US (occurrence: US)
  Receive Date: 20160426
  Receipt Date: 20180710
  Transmission Date: 20181010
  Serious: No
  Sender: FDA-Public Use
  Company Number: US-ALKERMES INC.-ALK-2016-000077

PATIENT
  Age: 43 Year
  Sex: Male
  Weight: 79.37 kg

DRUGS (13)
  1. REYATAZ [Concomitant]
     Active Substance: ATAZANAVIR SULFATE
     Indication: PRODUCT USED FOR UNKNOWN INDICATION
     Dosage: 300 MG, QD
     Route: 048
     Dates: start: 20040821
  2. SINGULAIR [Concomitant]
     Active Substance: MONTELUKAST SODIUM
     Indication: PRODUCT USED FOR UNKNOWN INDICATION
     Dosage: 10 MG, QD
     Route: 048
     Dates: start: 20100821
  3. NALTREXONE [Concomitant]
     Active Substance: NALTREXONE
     Indication: LIBIDO INCREASED
  4. TRAZODONE [Concomitant]
     Active Substance: TRAZODONE HYDROCHLORIDE
     Indication: INSOMNIA
     Dosage: 50 MG, QD PRN
     Route: 048
     Dates: start: 20130821
  5. NALTREXONE [Concomitant]
     Active Substance: NALTREXONE
     Indication: DRUG DEPENDENCE
     Dosage: 50 MG, QD (DAY 21?28)
     Route: 048
     Dates: start: 20151222
  6. EPZICOM [Concomitant]
     Active Substance: ABACAVIR SULFATE\LAMIVUDINE
     Indication: HIV INFECTION
     Dosage: 600/300 MG, 1 TABLET QD
     Route: 048
     Dates: start: 20130821
  7. ZYRTEC [Concomitant]
     Active Substance: CETIRIZINE HYDROCHLORIDE
     Indication: PRODUCT USED FOR UNKNOWN INDICATION
     Dosage: 10 MG, QD
     Route: 048
     Dates: start: 20100821
  8. VIVITROL [Suspect]
     Active Substance: NALTREXONE
     Indication: DRUG DEPENDENCE
     Dosage: 380 MG, QMO
     Route: 030
     Dates: start: 20160112
  9. VIVITROL [Suspect]
     Active Substance: NALTREXONE
     Indication: COMPULSIVE SEXUAL BEHAVIOUR
     Dosage: 380 MG, QMO
     Route: 030
     Dates: start: 20150821, end: 20151204
  10. NORVIR [Concomitant]
     Active Substance: RITONAVIR
     Indication: HIV INFECTION
     Dosage: 100 MG, QD
     Route: 048
     Dates: start: 20040821
  11. RISPERIDONE. [Concomitant]
     Active Substance: RISPERIDONE
     Indication: PRODUCT USED FOR UNKNOWN INDICATION
     Dosage: 0.5 MG, QOD
     Route: 048
     Dates: start: 20140821
  12. LAMICTAL [Concomitant]
     Active Substance: LAMOTRIGINE
     Indication: MOOD ALTERED
     Dosage: 200 MG, QD
     Route: 048
     Dates: start: 201510
  13. QNASL [Concomitant]
     Active Substance: BECLOMETHASONE DIPROPIONATE
     Indication: PRODUCT USED FOR UNKNOWN INDICATION
     Dosage: 80 MCG/ACTUATION HFA AER, 1 SPRAY QD
     Route: 045
     Dates: start: 20150821

REACTIONS (20)
  - Product reconstitution quality issue [Recovered/Resolved]
  - Mania [Unknown]
  - Off label use [Not Recovered/Not Resolved]
  - Injection site reaction [Unknown]
  - Drug dose omission [Recovered/Resolved]
  - Treatment noncompliance [Recovered/Resolved]
  - Abnormal behaviour [Not Recovered/Not Resolved]
  - Anger [Unknown]
  - Pain in extremity [Recovered/Resolved]
  - Drug effect decreased [Unknown]
  - Needle issue [Recovered/Resolved]
  - Logorrhoea [Unknown]
  - Thinking abnormal [Unknown]
  - Injection site pain [Unknown]
  - Drug administration error [Recovered/Resolved]
  - Substance abuse [Unknown]
  - Product quality issue [Recovered/Resolved]
  - Libido increased [Not Recovered/Not Resolved]
  - Sleep disorder [Unknown]
  - Disturbance in attention [Unknown]

NARRATIVE: CASE EVENT DATE: 20150112
